FAERS Safety Report 9156723 (Version 1)
Quarter: 2013Q1

REPORT INFORMATION
  Report Type: Spontaneous
  Country: US (occurrence: None)
  Receive Date: 20130211
  Receipt Date: 20130211
  Transmission Date: 20140127
  Serious: Yes (Hospitalization)
  Sender: FDA-Public Use
  Company Number: 1008-330

PATIENT
  Age: 42 Year
  Sex: Male
  Weight: 83 kg

DRUGS (1)
  1. RILONACEPT [Suspect]
     Indication: FAMILIAL MEDITERRANEAN FEVER
     Dosage: BLINDED (RILONACEPT OR PLACEBO)
     Route: 058

REACTIONS (2)
  - Respiratory tract infection [None]
  - Bacterial test positive [None]
